FAERS Safety Report 14553282 (Version 1)
Quarter: 2018Q1

REPORT INFORMATION
  Report Type: Other
  Country: GB (occurrence: GB)
  Receive Date: 20180220
  Receipt Date: 20180220
  Transmission Date: 20180509
  Serious: Yes (Hospitalization, Other)
  Sender: FDA-Public Use
  Company Number: GB-ALEXION PHARMACEUTICALS INC.-A201706969

PATIENT
  Sex: Female
  Weight: 10 kg

DRUGS (10)
  1. VITAMIN E                          /00110501/ [Concomitant]
     Active Substance: TOCOPHEROL
     Indication: MALABSORPTION
     Dosage: UNK
     Route: 065
  2. VITAMIN K [Concomitant]
     Active Substance: PHYTONADIONE
     Indication: MALABSORPTION
     Route: 065
  3. VITAMIN D                          /00107901/ [Concomitant]
     Active Substance: ERGOCALCIFEROL
     Indication: MALABSORPTION
     Route: 065
  4. SEBELIPASE ALFA [Suspect]
     Active Substance: SEBELIPASE ALFA
     Dosage: 18 MG, QW
     Route: 042
  5. SEBELIPASE ALFA [Suspect]
     Active Substance: SEBELIPASE ALFA
     Dosage: 26 MG, QW
     Route: 042
  6. VITAMIN E                          /00110501/ [Concomitant]
     Active Substance: TOCOPHEROL
     Indication: PROPHYLAXIS
  7. SEBELIPASE ALFA [Suspect]
     Active Substance: SEBELIPASE ALFA
     Indication: LYSOSOMAL ACID LIPASE DEFICIENCY
     Dosage: 13.5 MG, QW
     Route: 042
     Dates: start: 20170204
  8. VITAMIN A                          /00056001/ [Concomitant]
     Active Substance: RETINOL
     Indication: MALABSORPTION
     Dosage: UNK
     Route: 065
  9. VITAMIN D                          /00107901/ [Concomitant]
     Active Substance: ERGOCALCIFEROL
     Indication: PROPHYLAXIS
  10. VITAMIN A                          /00056001/ [Concomitant]
     Active Substance: RETINOL
     Indication: PROPHYLAXIS

REACTIONS (4)
  - Pyrexia [Recovered/Resolved]
  - Vomiting [Unknown]
  - Respiratory symptom [Unknown]
  - Sepsis [Recovered/Resolved]

NARRATIVE: CASE EVENT DATE: 20170607
